FAERS Safety Report 12386603 (Version 1)
Quarter: 2016Q2

REPORT INFORMATION
  Report Type: Spontaneous
  Country: TH (occurrence: TH)
  Receive Date: 20160519
  Receipt Date: 20160519
  Transmission Date: 20160815
  Serious: Yes (Hospitalization, Other)
  Sender: FDA-Public Use
  Company Number: TH-WATSON-2016-10149

PATIENT
  Age: 15 Year
  Sex: Female

DRUGS (2)
  1. ROACUTAN [Concomitant]
     Active Substance: ISOTRETINOIN
     Indication: ACNE
     Dosage: 1 DF, DAILY
     Route: 048
     Dates: start: 20140214, end: 20140217
  2. COTRIMOXAZOLE [Suspect]
     Active Substance: SULFAMETHOXAZOLE\TRIMETHOPRIM
     Indication: ACNE
     Dosage: 2 DF, DAILY
     Route: 048
     Dates: start: 20131212, end: 20140217

REACTIONS (1)
  - Drug reaction with eosinophilia and systemic symptoms [Recovered/Resolved]

NARRATIVE: CASE EVENT DATE: 20140215
